FAERS Safety Report 8071969-1 (Version None)
Quarter: 2012Q1

REPORT INFORMATION
  Report Type: 
  Country: None (occurrence: None)
  Receive Date: 20120124
  Receipt Date: 20120124
  Transmission Date: 20120608
  Serious: Yes (Other)
  Sender: FDA-Public Use
  Company Number: None

PATIENT
  Age: 19 Year
  Sex: Female
  Weight: 54.5 kg

DRUGS (1)
  1. MAXALT [Suspect]
     Indication: MIGRAINE
     Dosage: 10MG PRN ORAL
     Route: 048
     Dates: start: 20120102, end: 20120113

REACTIONS (2)
  - THROAT TIGHTNESS [None]
  - CHEST DISCOMFORT [None]
